FAERS Safety Report 10083520 (Version 2)
Quarter: 2014Q3

REPORT INFORMATION
  Report Type: Spontaneous
  Country: IT (occurrence: IT)
  Receive Date: 20140417
  Receipt Date: 20140723
  Transmission Date: 20150326
  Serious: Yes (Other)
  Sender: FDA-Public Use
  Company Number: IT-THROMBOGENICS INC-JET-2014-244

PATIENT
  Age: 48 Year
  Sex: Female

DRUGS (1)
  1. JETREA [Suspect]
     Active Substance: OCRIPLASMIN
     Indication: VITREOUS ADHESIONS
     Dosage: 0.125 MG, ONE TIME DOSE
     Route: 031
     Dates: start: 20140403, end: 20140403

REACTIONS (8)
  - Myopia [Recovered/Resolved]
  - Night blindness [Recovered/Resolved]
  - Blindness transient [Recovered/Resolved]
  - Photopsia [Not Recovered/Not Resolved]
  - Visual impairment [Recovered/Resolved]
  - Vision blurred [Recovered/Resolved]
  - Visual acuity reduced [Recovered/Resolved]
  - Chromatopsia [Not Recovered/Not Resolved]

NARRATIVE: CASE EVENT DATE: 20140404
